FAERS Safety Report 14281335 (Version 1)
Quarter: 2017Q4

REPORT INFORMATION
  Report Type: Spontaneous
  Country: PT (occurrence: PT)
  Receive Date: 20171213
  Receipt Date: 20171213
  Transmission Date: 20180321
  Serious: Yes (Death, Other)
  Sender: FDA-Public Use
  Company Number: PT-009507513-1712PRT004014

PATIENT
  Age: 66 Year
  Sex: Male

DRUGS (1)
  1. ZERBAXA [Suspect]
     Active Substance: CEFTOLOZANE SULFATE\TAZOBACTAM SODIUM
     Indication: PNEUMONIA PSEUDOMONAL
     Dosage: 2G CEFTAZOLANE + 1G TAZOBACTAM EVERY 8 HOURS.

REACTIONS (4)
  - Product use in unapproved indication [Unknown]
  - Malignant neoplasm progression [Fatal]
  - Septic shock [Fatal]
  - Incorrect dose administered [Unknown]
